FAERS Safety Report 9757545 (Version 3)
Quarter: 2014Q1

REPORT INFORMATION
  Report Type: Report from Study
  Country: AU (occurrence: AU)
  Receive Date: 20131216
  Receipt Date: 20140212
  Transmission Date: 20141002
  Serious: Yes (Hospitalization)
  Sender: FDA-Public Use
  Company Number: AU-ROCHE-1318009

PATIENT
  Sex: Male

DRUGS (2)
  1. ACTEMRA [Suspect]
     Indication: RHEUMATOID ARTHRITIS
     Route: 042
     Dates: start: 20111007
  2. ACTEMRA [Suspect]
     Route: 042
     Dates: start: 20140205

REACTIONS (2)
  - Heart valve incompetence [Recovered/Resolved]
  - Coronary artery occlusion [Recovered/Resolved]
